FAERS Safety Report 7873858-1 (Version None)
Quarter: 2011Q4

REPORT INFORMATION
  Report Type: 
  Country: None (occurrence: None)
  Receive Date: 20111030
  Receipt Date: 20110511
  Transmission Date: 20120403
  Serious: No
  Sender: FDA-Public Use
  Company Number: US-AMGEN-USASP2011024575

PATIENT
  Sex: Male
  Weight: 85.5 kg

DRUGS (7)
  1. HUMIRA [Concomitant]
     Dosage: 40 MG, UNK
     Dates: start: 20090101
  2. COLESEVELAM HYDROCHLORIDE [Concomitant]
     Dosage: UNK
  3. EZETIMIBE [Concomitant]
     Dosage: UNK
  4. ENBREL [Suspect]
     Indication: PRODUCT USED FOR UNKNOWN INDICATION
     Dosage: UNK
  5. TRAMADOL HCL [Concomitant]
     Dosage: UNK
  6. NABUMETONE [Concomitant]
     Dosage: UNK
  7. HYDROXYCHLOROQUINE SULFATE [Concomitant]
     Dosage: UNK

REACTIONS (4)
  - HIP FRACTURE [None]
  - PSORIASIS [None]
  - INJECTION SITE PAIN [None]
  - PHOTOSENSITIVITY REACTION [None]
